FAERS Safety Report 18351986 (Version 1)
Quarter: 2020Q4

REPORT INFORMATION
  Report Type: Spontaneous
  Country: CH (occurrence: CH)
  Receive Date: 20201007
  Receipt Date: 20201007
  Transmission Date: 20210114
  Serious: Yes (Other)
  Sender: FDA-Public Use
  Company Number: CH-TEVA-2020-CH-1835319

PATIENT
  Age: 38 Year
  Sex: Male

DRUGS (1)
  1. SILDENAFIL. [Suspect]
     Active Substance: SILDENAFIL
     Indication: INTENTIONAL OVERDOSE
     Route: 048

REACTIONS (4)
  - Retinal haemorrhage [Recovered/Resolved]
  - Maculopathy [Recovered/Resolved]
  - Blindness [Recovered/Resolved]
  - Intentional overdose [Recovered/Resolved]
